FAERS Safety Report 12898609 (Version 1)
Quarter: 2016Q4

REPORT INFORMATION
  Report Type: Spontaneous
  Country: BG (occurrence: BG)
  Receive Date: 20161101
  Receipt Date: 20161101
  Transmission Date: 20170207
  Serious: Yes (Other)
  Sender: FDA-Public Use
  Company Number: BG-ASTRAZENECA-2016SF12320

PATIENT
  Age: 6 Year

DRUGS (2)
  1. PULMICORT TURBUHALER [Suspect]
     Active Substance: BUDESONIDE
     Dosage: ONE SINGLE DOSE UNIT DAILY, REGULARLY; UPON EXACERBATION - INCREASING THE DOSAGE TO TWO SINGLE DO...
     Route: 055
     Dates: start: 201411
  2. PULMICORT TURBUHALER [Suspect]
     Active Substance: BUDESONIDE
     Dosage: ONE SINGLE DOSE UNIT TWO TIMES A DAY
     Route: 055

REACTIONS (1)
  - Asthma [Recovered/Resolved]
